FAERS Safety Report 12378101 (Version 1)
Quarter: 2016Q2

REPORT INFORMATION
  Report Type: Report from Study
  Country: US (occurrence: US)
  Receive Date: 20160517
  Receipt Date: 20160517
  Transmission Date: 20160815
  Serious: No
  Sender: FDA-Public Use
  Company Number: US-MALLINCKRODT-T201600683

PATIENT
  Age: 59 Year
  Sex: Female

DRUGS (4)
  1. NITROGLYCERIN. [Concomitant]
     Active Substance: NITROGLYCERIN
     Indication: OESOPHAGEAL STENOSIS
     Dosage: 4 PER DAY
     Route: 065
  2. BENLYSTA [Concomitant]
     Active Substance: BELIMUMAB
  3. REPOSITORY CORTICOTROPIN INJECTION [Suspect]
     Active Substance: CORTICOTROPIN
     Indication: SYSTEMIC LUPUS ERYTHEMATOSUS
     Dosage: 80 UNITS TWICE A WEEK
     Route: 058
     Dates: start: 20160103, end: 20160313
  4. BOTOX [Concomitant]
     Active Substance: ONABOTULINUMTOXINA
     Indication: OESOPHAGEAL STENOSIS
     Route: 065

REACTIONS (4)
  - Vocal cord disorder [Recovered/Resolved]
  - Drug ineffective [Unknown]
  - Injection site irritation [Not Recovered/Not Resolved]
  - Injection site bruising [Not Recovered/Not Resolved]

NARRATIVE: CASE EVENT DATE: 20160103
